FAERS Safety Report 4612610-7 (Version None)
Quarter: 2005Q1

REPORT INFORMATION
  Report Type: 
  Country: None (occurrence: None)
  Receive Date: 20050318
  Receipt Date: 20050311
  Transmission Date: 20050727
  Serious: Yes (Hospitalization)
  Sender: FDA-Public Use
  Company Number: US-BRISTOL-MYERS SQUIBB COMPANY-12895975

PATIENT
  Age: 47 Year
  Sex: Female

DRUGS (3)
  1. ERBITUX [Suspect]
     Indication: COLON CANCER METASTATIC
     Dosage: LOADING DOSE, D/C HALF WAY THROUGHT INFUSION
     Route: 042
  2. AVASTIN [Concomitant]
  3. BENADRYL [Concomitant]
     Indication: PREMEDICATION
     Route: 042

REACTIONS (7)
  - BLOOD PRESSURE DECREASED [None]
  - CHEST DISCOMFORT [None]
  - COUGH [None]
  - HEADACHE [None]
  - HYPOAESTHESIA [None]
  - INFUSION RELATED REACTION [None]
  - THROAT IRRITATION [None]
